FAERS Safety Report 10188481 (Version 1)
Quarter: 2014Q2

REPORT INFORMATION
  Report Type: Spontaneous
  Country: US (occurrence: US)
  Receive Date: 20140522
  Receipt Date: 20140522
  Transmission Date: 20141212
  Serious: No
  Sender: FDA-Public Use
  Company Number: US-SA-2014SA031538

PATIENT
  Age: 86 Year
  Sex: Female

DRUGS (7)
  1. SOLOSTAR [Suspect]
     Indication: DEVICE THERAPY
     Dates: start: 200605
  2. LANTUS SOLOSTAR [Suspect]
     Indication: TYPE 2 DIABETES MELLITUS
     Dosage: DOSE:24 UNIT(S)
     Route: 065
     Dates: start: 200605
  3. FOLIC ACID [Concomitant]
  4. COREG [Concomitant]
     Indication: BLOOD PRESSURE
  5. ASPIRIN [Concomitant]
  6. WARFARIN [Concomitant]
     Indication: ATRIAL FIBRILLATION
  7. LIPITOR [Concomitant]

REACTIONS (1)
  - Drug dose omission [Unknown]
